FAERS Safety Report 10094607 (Version 1)
Quarter: 2014Q2

REPORT INFORMATION
  Report Type: Spontaneous
  Country: US (occurrence: US)
  Receive Date: 20140422
  Receipt Date: 20140422
  Transmission Date: 20141212
  Serious: No
  Sender: FDA-Public Use
  Company Number: US-PFIZER INC-2014108318

PATIENT
  Age: 81 Year
  Sex: Female
  Weight: 72.11 kg

DRUGS (4)
  1. LIPITOR [Suspect]
     Dosage: UNK
     Dates: start: 2004
  2. SYNTHROID [Concomitant]
     Indication: THYROID DISORDER
     Dosage: 0.75 MG, 1X/DAY
     Dates: start: 1979
  3. ALDACTONE [Concomitant]
     Dosage: 25 MG, 2X/DAY
     Dates: start: 2008
  4. ECOTRIN [Concomitant]
     Dosage: 81 MG, 1X/DAY

REACTIONS (1)
  - Cardiac disorder [Unknown]
